FAERS Safety Report 10223306 (Version 1)
Quarter: 2014Q2

REPORT INFORMATION
  Report Type: Spontaneous
  Country: US (occurrence: None)
  Receive Date: 20140606
  Receipt Date: 20140606
  Transmission Date: 20141212
  Serious: Yes (Life-Threatening)
  Sender: FDA-Public Use
  Company Number: None

PATIENT
  Age: 79 Year
  Sex: Female
  Weight: 78.6 kg

DRUGS (3)
  1. OMNIPAQUE [Suspect]
     Indication: ARTERIOGRAM CORONARY
     Route: 042
     Dates: start: 20140527, end: 20140527
  2. LISINOPRIL [Concomitant]
  3. PROMETHAZINE [Concomitant]

REACTIONS (5)
  - Hypotension [None]
  - Unresponsive to stimuli [None]
  - Erythema [None]
  - Contrast media allergy [None]
  - Anaphylactic reaction [None]
